FAERS Safety Report 10026466 (Version 2)
Quarter: 2014Q1

REPORT INFORMATION
  Report Type: Spontaneous
  Country: CA (occurrence: CA)
  Receive Date: 20140321
  Receipt Date: 20140321
  Transmission Date: 20141002
  Serious: Yes (Other)
  Sender: FDA-Public Use
  Company Number: CA-PFIZER INC-2014075573

PATIENT
  Age: 66 Year
  Sex: Male

DRUGS (3)
  1. SULFASALAZINE [Suspect]
     Indication: COLITIS ULCERATIVE
     Dosage: 8 G, DAILY
  2. SULFASALAZINE [Suspect]
     Dosage: 2 G, DAILY
  3. HYDROCORTISONE [Concomitant]
     Dosage: UNK

REACTIONS (6)
  - Interstitial lung disease [Recovering/Resolving]
  - Obliterative bronchiolitis [Recovering/Resolving]
  - Pulmonary granuloma [Recovering/Resolving]
  - Pulmonary fibrosis [Recovering/Resolving]
  - Lung disorder [Recovering/Resolving]
  - Idiopathic pulmonary fibrosis [Not Recovered/Not Resolved]
